FAERS Safety Report 5213494-9 (Version None)
Quarter: 2007Q1

REPORT INFORMATION
  Report Type: 
  Country: None (occurrence: None)
  Receive Date: 20070119
  Receipt Date: 20070112
  Transmission Date: 20070707
  Serious: Yes (Hospitalization)
  Sender: FDA-Public Use
  Company Number: PT-ABBOTT-07P-130-0354948-00

PATIENT
  Sex: Male

DRUGS (3)
  1. CATALIP [Suspect]
     Indication: DRUG USE FOR UNKNOWN INDICATION
     Route: 048
     Dates: start: 20061128, end: 20061210
  2. MODURETIC 5-50 [Concomitant]
     Indication: DRUG USE FOR UNKNOWN INDICATION
  3. ELIDIUR [Concomitant]
     Indication: DRUG USE FOR UNKNOWN INDICATION

REACTIONS (3)
  - FACE OEDEMA [None]
  - GENERALISED ERYTHEMA [None]
  - HYPERSENSITIVITY [None]
